FAERS Safety Report 19930107 (Version 2)
Quarter: 2021Q4

REPORT INFORMATION
  Report Type: Spontaneous
  Country: US (occurrence: US)
  Receive Date: 20211008
  Receipt Date: 20211014
  Transmission Date: 20220303
  Serious: No
  Sender: FDA-Public Use
  Company Number: US-AMGEN-USASP2021150751

PATIENT
  Sex: Female

DRUGS (2)
  1. ENBREL [Suspect]
     Active Substance: ETANERCEPT
     Indication: Psoriatic arthropathy
     Dosage: UNK
     Route: 065
     Dates: start: 2021, end: 2021
  2. ENBREL [Suspect]
     Active Substance: ETANERCEPT
     Dosage: 1.4 MILLILITER, QWK
     Route: 058
     Dates: start: 2021

REACTIONS (7)
  - Drug hypersensitivity [Unknown]
  - Injection site pain [Unknown]
  - Injection site urticaria [Recovered/Resolved]
  - Injection site erythema [Unknown]
  - Eye inflammation [Recovered/Resolved]
  - Pain in extremity [Unknown]
  - Back pain [Unknown]

NARRATIVE: CASE EVENT DATE: 20210101
